FAERS Safety Report 18867320 (Version 1)
Quarter: 2021Q1

REPORT INFORMATION
  Report Type: Spontaneous
  Country: NL (occurrence: NL)
  Receive Date: 20210209
  Receipt Date: 20210209
  Transmission Date: 20210420
  Serious: Yes (Other)
  Sender: FDA-Public Use
  Company Number: NL-TEVA-2021-NL-1877342

PATIENT
  Sex: Male
  Weight: 105 kg

DRUGS (6)
  1. LOSARTAN TABLET FO  50MG / BRAND NAME NOT SPECIFIED [Concomitant]
     Dosage: 50 MG (MILLIGRAM):THERAPY START DATE:ASKED BUT UNKNOWN:THERAPY END DATE :ASKED BUT UNKNOWN
  2. ACENOCOUMAROL TABLET 1MG / BRAND NAME NOT SPECIFIED [Concomitant]
     Active Substance: ACENOCOUMAROL
     Dosage: 1 MG (MILLIGRAM):THERAPY START DATE:ASKED BUT UNKNOWN:THERAPY END DATE :ASKED BUT UNKNOWN
  3. MACROGOL [Concomitant]
     Active Substance: POLYETHYLENE GLYCOLS
     Dosage: POWDER FOR DRINKTHERAPY START DATE:ASKED BUT UNKNOWN:THERAPY END DATE :ASKED BUT UNKNOWN
  4. ALLOPURINOL TABLET 100MG / BRAND NAME NOT SPECIFIED [Suspect]
     Active Substance: ALLOPURINOL
     Indication: GOUT
     Dosage: 100 MILLIGRAM DAILY; 1X DAILY 1 TABLET:THERAPY END DATE :ASKED BUT UNKNOWN
     Dates: start: 20201204
  5. BUMETANIDE TABLET 2MG / BRAND NAME NOT SPECIFIED [Concomitant]
     Dosage: 2 MG (MILLIGRAM)THERAPY START DATE:ASKED BUT UNKNOWN:THERAPY END DATE :ASKED BUT UNKNOWN
  6. FLUTICASON CREME 0,5MG/G / BRAND NAME NOT SPECIFIED [Concomitant]
     Dosage: CREAM, 0.5 MG / G (MILLIGRAMS PER GRAM):THERAPY START DATE:ASKED BUT UNKNOWNTHERAPY END DATE :ASKED

REACTIONS (2)
  - Poor quality sleep [Not Recovered/Not Resolved]
  - Hypothermia [Not Recovered/Not Resolved]
